FAERS Safety Report 7098138-6 (Version None)
Quarter: 2010Q4

REPORT INFORMATION
  Report Type: 
  Country: None (occurrence: None)
  Receive Date: 20101112
  Receipt Date: 20101109
  Transmission Date: 20110411
  Serious: Yes (Congenital Anomaly)
  Sender: FDA-Public Use
  Company Number: NO-EISAI INC.-E2090-01387-SOL-NO

PATIENT

DRUGS (3)
  1. ZONISAMIDE [Suspect]
     Route: 064
  2. CLOBAZAM [Suspect]
     Dosage: UNKNOWN
     Route: 064
  3. LAMOTRIGINE [Suspect]
     Dosage: UNKNOWN
     Route: 064

REACTIONS (2)
  - ATRIAL SEPTAL DEFECT [None]
  - DRUG EXPOSURE DURING PREGNANCY [None]
